FAERS Safety Report 13550475 (Version 1)
Quarter: 2017Q2

REPORT INFORMATION
  Report Type: Spontaneous
  Country: LT (occurrence: LT)
  Receive Date: 20170516
  Receipt Date: 20170516
  Transmission Date: 20170830
  Serious: Yes (Hospitalization, Other)
  Sender: FDA-Public Use
  Company Number: LT-IMPAX LABORATORIES, INC-2017-IPXL-01302

PATIENT
  Age: 30 Year
  Sex: Female

DRUGS (4)
  1. DIVALPROEX SODIUM ER [Suspect]
     Active Substance: DIVALPROEX SODIUM
     Indication: SUICIDE ATTEMPT
     Dosage: 40-45 G, SINGLE
     Route: 065
  2. DIVALPROEX SODIUM ER [Suspect]
     Active Substance: DIVALPROEX SODIUM
     Indication: EPILEPSY
     Dosage: UNK
     Route: 065
  3. LAMOTRIGINE ODT [Suspect]
     Active Substance: LAMOTRIGINE
     Indication: SUICIDE ATTEMPT
     Dosage: APPROX 700 MG, SINGLE
     Route: 065
  4. LAMOTRIGINE ODT [Suspect]
     Active Substance: LAMOTRIGINE
     Indication: EPILEPSY
     Dosage: UNK
     Route: 065

REACTIONS (5)
  - Suicide attempt [Unknown]
  - Vitamin D deficiency [Recovered/Resolved]
  - Intentional overdose [Unknown]
  - Hypocalcaemia [Unknown]
  - Drug ineffective [Unknown]
